FAERS Safety Report 5098766-3 (Version None)
Quarter: 2006Q3

REPORT INFORMATION
  Report Type: 
  Country: None (occurrence: None)
  Receive Date: 20060907
  Receipt Date: 20060831
  Transmission Date: 20061208
  Serious: Yes (Hospitalization)
  Sender: FDA-Public Use
  Company Number: CH-GLAXOSMITHKLINE-B0437026A

PATIENT
  Age: 72 Year
  Sex: Male

DRUGS (10)
  1. AUGMENTIN [Suspect]
     Indication: OPEN WOUND
     Dosage: 2.2G THREE TIMES PER DAY
     Route: 042
     Dates: start: 20060715, end: 20060730
  2. DITANRIX [Concomitant]
  3. PRIMPERAN TAB [Concomitant]
  4. NOVALGIN [Concomitant]
  5. ACETAMINOPHEN [Concomitant]
  6. ZURCAL [Concomitant]
  7. NEXIUM [Concomitant]
  8. BETALOC ZOK [Concomitant]
  9. LASIX [Concomitant]
  10. LIQUAEMIN INJ [Concomitant]

REACTIONS (7)
  - ALANINE AMINOTRANSFERASE INCREASED [None]
  - ASPARTATE AMINOTRANSFERASE INCREASED [None]
  - BLOOD ALKALINE PHOSPHATASE INCREASED [None]
  - BLOOD BILIRUBIN INCREASED [None]
  - HEPATITIS CHOLESTATIC [None]
  - JAUNDICE [None]
  - TRANSAMINASES INCREASED [None]
